FAERS Safety Report 13909355 (Version 2)
Quarter: 2017Q4

REPORT INFORMATION
  Report Type: Report from Study
  Country: None (occurrence: DE)
  Receive Date: 20170828
  Receipt Date: 20171005
  Transmission Date: 20180320
  Serious: Yes (Other)
  Sender: FDA-Public Use
  Company Number: DE-ABBVIE-17K-062-2081840-00

PATIENT
  Age: 53 Year
  Sex: Male
  Weight: 60 kg

DRUGS (1)
  1. HUMIRA [Suspect]
     Active Substance: ADALIMUMAB
     Indication: PSORIASIS
     Route: 058
     Dates: start: 2015, end: 20170213

REACTIONS (13)
  - Inflammation [Unknown]
  - Monoclonal immunoglobulin present [Unknown]
  - Immune thrombocytopenic purpura [Recovered/Resolved]
  - Lupus-like syndrome [Unknown]
  - Pharyngeal erythema [Unknown]
  - Megakaryocytes increased [Unknown]
  - Maculopathy [Unknown]
  - Bone marrow disorder [Recovered/Resolved]
  - Iron metabolism disorder [Unknown]
  - Bone marrow failure [Unknown]
  - Folate deficiency [Unknown]
  - Immune thrombocytopenic purpura [Unknown]
  - Blood count abnormal [Unknown]

NARRATIVE: CASE EVENT DATE: 2017
